FAERS Safety Report 11184933 (Version 1)
Quarter: 2015Q2

REPORT INFORMATION
  Report Type: Spontaneous
  Country: US (occurrence: None)
  Receive Date: 20150528
  Receipt Date: 20150528
  Transmission Date: 20150821
  Serious: Yes (Hospitalization)
  Sender: FDA-Public Use
  Company Number: 2015AP006728

PATIENT
  Age: 29 Year
  Sex: Female

DRUGS (2)
  1. TRAZODONE HYDROCHLORIDE (TRAZODONE) TABLET [Suspect]
     Active Substance: TRAZODONE HYDROCHLORIDE
     Indication: LOSS OF LIBIDO
  2. WELLBUTRIN [Suspect]
     Active Substance: BUPROPION HYDROCHLORIDE
     Indication: LOSS OF LIBIDO

REACTIONS (2)
  - Off label use [None]
  - Priapism [None]
